FAERS Safety Report 7982677-7 (Version None)
Quarter: 2011Q4

REPORT INFORMATION
  Report Type: 
  Country: None (occurrence: None)
  Receive Date: 20111215
  Receipt Date: 20111201
  Transmission Date: 20120403
  Serious: Yes (Hospitalization)
  Sender: FDA-Public Use
  Company Number: KR-SANOFI-AVENTIS-2011SA080674

PATIENT
  Age: 65 Year
  Sex: Male
  Weight: 80 kg

DRUGS (10)
  1. ALL OTHER THERAPEUTIC PRODUCTS [Concomitant]
     Dates: start: 19860101
  2. CARVEDILOL [Concomitant]
     Dates: start: 19860101
  3. METFORMIN HCL [Concomitant]
     Dates: start: 19910101
  4. CHOLINE ALFOSCERATE [Concomitant]
     Dates: start: 20070501
  5. UNSPECIFIED HERBAL [Suspect]
     Indication: SUPPORTIVE CARE
     Route: 065
     Dates: start: 20110801, end: 20110930
  6. ALL OTHER THERAPEUTIC PRODUCTS [Concomitant]
     Dates: start: 20070501
  7. LEUPROLIDE ACETATE [Suspect]
     Indication: PROSTATE CANCER
     Route: 065
     Dates: start: 20110811
  8. VITAMINS NOS [Concomitant]
     Dates: start: 20110728
  9. SITAGLIPTIN PHOSPHATE [Concomitant]
     Dates: start: 19910101
  10. CILOSTAZOL [Concomitant]
     Dates: start: 20070501

REACTIONS (1)
  - HEPATITIS A [None]
